FAERS Safety Report 23198848 (Version 1)
Quarter: 2023Q4

REPORT INFORMATION
  Report Type: Spontaneous
  Country: BE (occurrence: BE)
  Receive Date: 20231117
  Receipt Date: 20231117
  Transmission Date: 20240110
  Serious: Yes (Other)
  Sender: FDA-Public Use
  Company Number: BE-ELI_LILLY_AND_COMPANY-BE202311005271

PATIENT
  Age: 83 Year
  Sex: Female

DRUGS (2)
  1. OLUMIANT [Suspect]
     Active Substance: BARICITINIB
     Indication: Rheumatoid arthritis
     Dosage: 4 MG, UNKNOWN
     Route: 065
     Dates: start: 201909
  2. METHOTREXATE [Concomitant]
     Active Substance: METHOTREXATE
     Indication: Tenosynovitis
     Dosage: 10 MG, WEEKLY (1/W)
     Dates: start: 202012

REACTIONS (1)
  - Lip and/or oral cavity cancer recurrent [Unknown]
